FAERS Safety Report 24709400 (Version 1)
Quarter: 2024Q4

REPORT INFORMATION
  Report Type: Spontaneous
  Country: US (occurrence: US)
  Receive Date: 20241209
  Receipt Date: 20241209
  Transmission Date: 20250115
  Serious: No
  Sender: CIPLA
  Company Number: US-CIPLA LTD.-2024US06150

PATIENT

DRUGS (2)
  1. GABAPENTIN [Suspect]
     Active Substance: GABAPENTIN
     Indication: Nerve injury
     Dosage: 100 MILLIGRAM, QD
     Route: 065
     Dates: start: 20210111
  2. GABAPENTIN [Suspect]
     Active Substance: GABAPENTIN
     Dosage: 700 MG TOTAL A DAY
     Route: 065

REACTIONS (3)
  - Tic [Unknown]
  - Brain fog [Unknown]
  - Memory impairment [Unknown]

NARRATIVE: CASE EVENT DATE: 20230101
